FAERS Safety Report 8080157-4 (Version None)
Quarter: 2012Q1

REPORT INFORMATION
  Report Type: 
  Country: None (occurrence: None)
  Receive Date: 20120124
  Receipt Date: 20120105
  Transmission Date: 20120608
  Serious: Yes (Other)
  Sender: FDA-Public Use
  Company Number: ADR-201257001

PATIENT
  Age: 62 Year
  Sex: Female

DRUGS (2)
  1. SERTRALINE HYDROCHLORIDE [Suspect]
     Indication: DEPRESSION
     Dosage: 50 MG; QD
  2. TDCS (NO PREF. NAME) [Suspect]
     Dosage: QD

REACTIONS (10)
  - RESTLESSNESS [None]
  - SLEEP DISORDER [None]
  - AGITATION [None]
  - HALLUCINATION, AUDITORY [None]
  - DELUSION [None]
  - HOSTILITY [None]
  - IRRITABILITY [None]
  - BIPOLAR I DISORDER [None]
  - MOOD SWINGS [None]
  - EUPHORIC MOOD [None]
